FAERS Safety Report 16050707 (Version 1)
Quarter: 2019Q1

REPORT INFORMATION
  Report Type: Spontaneous
  Country: GR (occurrence: GR)
  Receive Date: 20190308
  Receipt Date: 20190308
  Transmission Date: 20190418
  Serious: Yes (Life-Threatening, Hospitalization)
  Sender: FDA-Public Use
  Company Number: GR-TEVA-2019-GR-1022278

PATIENT
  Age: 65 Year
  Sex: Male
  Weight: 85 kg

DRUGS (2)
  1. PAXENE (PACLITAXEL) [Suspect]
     Active Substance: PACLITAXEL
     Dates: start: 20130627, end: 20130627
  2. CARBOPLAN [Suspect]
     Active Substance: CARBOPLATIN
     Dates: start: 20130627, end: 20130627

REACTIONS (4)
  - Erythema [Recovering/Resolving]
  - Blood pressure decreased [Recovering/Resolving]
  - Dyspnoea [Recovering/Resolving]
  - Palpitations [Recovering/Resolving]
